APPROVED DRUG PRODUCT: ASPRUZYO SPRINKLE
Active Ingredient: RANOLAZINE
Strength: 1GM
Dosage Form/Route: GRANULES, EXTENDED RELEASE;ORAL
Application: N216018 | Product #002
Applicant: SUN PHARMA INDUSTRIES LTD
Approved: Feb 28, 2022 | RLD: Yes | RS: No | Type: DISCN

PATENTS:
Patent 11510878 | Expires: Jan 24, 2038
Patent 12161761 | Expires: Jan 24, 2038
Patent 10898444 | Expires: Jan 24, 2038